FAERS Safety Report 7384376-1 (Version None)
Quarter: 2011Q1

REPORT INFORMATION
  Report Type: 
  Country: None (occurrence: None)
  Receive Date: 20110330
  Receipt Date: 20110314
  Transmission Date: 20110831
  Serious: Yes (Hospitalization, Other)
  Sender: FDA-Public Use
  Company Number: US-BAYER-201038082NA

PATIENT
  Sex: Female
  Weight: 74.83 kg

DRUGS (21)
  1. OCELLA [Suspect]
     Indication: PRODUCT USED FOR UNKNOWN INDICATION
  2. COUMADIN [Concomitant]
     Indication: DEEP VEIN THROMBOSIS
     Dosage: 5 MG, UNK
     Dates: start: 20081001, end: 20090123
  3. COUMADIN [Concomitant]
     Dosage: UNK
     Dates: start: 20090129
  4. CYTOMEL [Concomitant]
     Indication: HYPOTHYROIDISM
     Dosage: UNK
     Dates: start: 20091001, end: 20100501
  5. COUMADIN [Concomitant]
     Dosage: UNK
     Dates: start: 20080901
  6. LEVOXYL [Concomitant]
     Indication: HYPOTHYROIDISM
     Dosage: UNK
     Dates: start: 20090401
  7. YAZ [Suspect]
     Indication: PREMENSTRUAL SYNDROME
  8. YASMIN [Suspect]
     Indication: CONTRACEPTION
     Dosage: 1 U, QD
     Dates: start: 20071001, end: 20081001
  9. THYROID PREPARATIONS [Concomitant]
     Dosage: UNK
  10. AMOXICILLIN [Concomitant]
     Dosage: UNK
  11. YAZ [Suspect]
     Indication: CONTRACEPTION
     Dosage: 1 U, QD
     Dates: start: 20071001, end: 20081001
  12. AMIODARONE HCL [Concomitant]
     Indication: HEART RATE ABNORMAL
     Dosage: UNK
     Dates: start: 20090129, end: 20090131
  13. DARVOCET [Concomitant]
     Dosage: UNK
  14. UNCODEABLE ^UNCLASSIFIABLE^ [Concomitant]
     Dosage: UNK
  15. PEPCID [Concomitant]
     Dosage: UNK
     Dates: end: 20091030
  16. UNCODEABLE ^UNCLASSIFIABLE^ [Concomitant]
     Dosage: UNK
  17. NSAID'S [Concomitant]
  18. METOPROLOL [Concomitant]
     Dosage: UNK
     Dates: end: 20090131
  19. UNCODEABLE ^UNCLASSIFIABLE^ [Concomitant]
     Dosage: UNK
     Dates: end: 20090201
  20. YASMIN [Suspect]
     Indication: PREMENSTRUAL SYNDROME
  21. PERCOCET [Concomitant]
     Dosage: UNK
     Dates: end: 20090131

REACTIONS (15)
  - DEEP VEIN THROMBOSIS [None]
  - BURNING SENSATION [None]
  - VISUAL ACUITY REDUCED [None]
  - VIITH NERVE PARALYSIS [None]
  - APHASIA [None]
  - OEDEMA PERIPHERAL [None]
  - DIZZINESS [None]
  - DYSPNOEA [None]
  - DYSARTHRIA [None]
  - PAIN [None]
  - TRANSIENT ISCHAEMIC ATTACK [None]
  - SYNCOPE [None]
  - THORACOTOMY [None]
  - HEMIANOPIA [None]
  - PARTIAL SEIZURES [None]
